FAERS Safety Report 5207682-5 (Version None)
Quarter: 2007Q1

REPORT INFORMATION
  Report Type: 
  Country: None (occurrence: None)
  Receive Date: 20070112
  Receipt Date: 20061220
  Transmission Date: 20070707
  Serious: Yes (Other)
  Sender: FDA-Public Use
  Company Number: US-PFIZER INC-2007000062

PATIENT
  Sex: Female

DRUGS (2)
  1. BEXTRA [Suspect]
     Route: 048
  2. VIOXX [Suspect]
     Route: 048
     Dates: start: 19991001

REACTIONS (1)
  - CORONARY ARTERY OCCLUSION [None]
